FAERS Safety Report 6974966-X (Version None)
Quarter: 2010Q3

REPORT INFORMATION
  Report Type: 
  Country: None (occurrence: None)
  Receive Date: 20100909
  Receipt Date: 20090113
  Transmission Date: 20110219
  Serious: No
  Sender: FDA-Public Use
  Company Number: US-WYE-H07709109

PATIENT
  Sex: Male
  Weight: 74.91 kg

DRUGS (4)
  1. PRISTIQ [Suspect]
     Indication: DEPRESSION
     Route: 048
     Dates: start: 20090101, end: 20090101
  2. PRISTIQ [Suspect]
     Indication: ANXIETY
     Route: 048
     Dates: start: 20090101, end: 20090101
  3. PRISTIQ [Suspect]
     Dosage: ^SPLIT THE TABLET IN HALF^
     Route: 048
     Dates: start: 20090101, end: 20090118
  4. WELLBUTRIN [Concomitant]

REACTIONS (2)
  - ANXIETY [None]
  - CONDITION AGGRAVATED [None]
